FAERS Safety Report 24570861 (Version 1)
Quarter: 2024Q4

REPORT INFORMATION
  Report Type: Report from Study
  Country: NL (occurrence: NL)
  Receive Date: 20241101
  Receipt Date: 20241101
  Transmission Date: 20250115
  Serious: Yes (Hospitalization)
  Sender: ABBVIE
  Company Number: NL-ABBVIE-5985577

PATIENT
  Sex: Male

DRUGS (10)
  1. CARBIDOPA\LEVODOPA [Suspect]
     Active Substance: CARBIDOPA\LEVODOPA
     Indication: Parkinson^s disease
     Dosage: MD:6.0ML; CD:3.2ML/H; ED:2.00ML
     Route: 050
     Dates: start: 20230331, end: 20230407
  2. CARBIDOPA\LEVODOPA [Suspect]
     Active Substance: CARBIDOPA\LEVODOPA
     Dosage: MD:6.0ML; CD:3.6ML/H; ED:2.00ML
     Route: 050
     Dates: start: 20230829
  3. CARBIDOPA\LEVODOPA [Suspect]
     Active Substance: CARBIDOPA\LEVODOPA
     Dosage: MD: 8.0ML; CD: 3.7ML/H; ED: 2.00ML
     Route: 050
     Dates: start: 20230320, end: 20230324
  4. CARBIDOPA\LEVODOPA [Suspect]
     Active Substance: CARBIDOPA\LEVODOPA
     Dosage: MD:6.0ML; CD:3.2ML/H; ED:2.00ML
     Dates: start: 20230407, end: 20230623
  5. CARBIDOPA\LEVODOPA [Suspect]
     Active Substance: CARBIDOPA\LEVODOPA
     Dosage: MD:3.0ML; CD:3.4ML/H; ED:2.00ML
     Route: 050
     Dates: start: 20230324, end: 20230331
  6. CARBIDOPA\LEVODOPA [Suspect]
     Active Substance: CARBIDOPA\LEVODOPA
     Dosage: MD:6.0ML; CD:3.6ML/H; ED:2.00ML
     Route: 050
     Dates: start: 20230623, end: 20230829
  7. SINEMET [Concomitant]
     Active Substance: CARBIDOPA\LEVODOPA
     Indication: Parkinson^s disease
     Dosage: 62.5
     Dates: end: 20230320
  8. SYMMETREL [Concomitant]
     Active Substance: AMANTADINE HYDROCHLORIDE
     Indication: Product used for unknown indication
  9. AZILECT [Concomitant]
     Active Substance: RASAGILINE MESYLATE
     Indication: Parkinson^s disease
     Dates: end: 20230320
  10. levodopa/carbidopa Ret [Concomitant]
     Indication: Parkinson^s disease
     Dosage: 125
     Dates: end: 20230320

REACTIONS (1)
  - Cerebral haemorrhage [Not Recovered/Not Resolved]
